FAERS Safety Report 11668082 (Version 2)
Quarter: 2015Q4

REPORT INFORMATION
  Report Type: Spontaneous
  Country: US (occurrence: US)
  Receive Date: 20151027
  Receipt Date: 20151029
  Transmission Date: 20160304
  Serious: No
  Sender: FDA-Public Use
  Company Number: CHPA2015US012636

PATIENT
  Age: 45 Year
  Sex: Female

DRUGS (2)
  1. VOLTAREN [Suspect]
     Active Substance: DICLOFENAC SODIUM
     Indication: PAIN
     Dosage: ABOUT THE SIZE OF A QUARTER FOR THE HIP 2 TO 3 TIMES A DAY
     Route: 061
     Dates: start: 201509
  2. VOLTAREN [Suspect]
     Active Substance: DICLOFENAC SODIUM
     Indication: SWELLING
     Dosage: I USE THE AMOUNT THE SIZE OF A NICKEL FOR MY KNEE, 2 TO 3 TIMES A DAY
     Route: 061
     Dates: start: 201509

REACTIONS (5)
  - Drug administered at inappropriate site [Unknown]
  - Inappropriate schedule of drug administration [Unknown]
  - Wrong technique in product usage process [Unknown]
  - Product use issue [Unknown]
  - Therapeutic response unexpected [Unknown]

NARRATIVE: CASE EVENT DATE: 201509
